FAERS Safety Report 4617977-1 (Version None)
Quarter: 2005Q1

REPORT INFORMATION
  Report Type: 
  Country: None (occurrence: None)
  Receive Date: 20050322
  Receipt Date: 20050308
  Transmission Date: 20050727
  Serious: Yes (Disabling)
  Sender: FDA-Public Use
  Company Number: 2005SE00984

PATIENT
  Age: 43 Year
  Sex: Male

DRUGS (3)
  1. MARCAINE [Suspect]
     Indication: ANAESTHESIA
     Dosage: 0.5 % ONCE IV
     Route: 042
     Dates: start: 20040115, end: 20040115
  2. PROPOFOL [Suspect]
     Indication: ANAESTHESIA
  3. ADRENALIN [Concomitant]

REACTIONS (18)
  - ANAESTHETIC COMPLICATION [None]
  - ANXIETY [None]
  - CRYING [None]
  - DEPRESSION [None]
  - DRUG TOXICITY [None]
  - FEAR [None]
  - FEELING ABNORMAL [None]
  - GRAND MAL CONVULSION [None]
  - ILLUSION [None]
  - INSOMNIA [None]
  - MEDICATION ERROR [None]
  - MENTAL DISORDER [None]
  - MOOD ALTERED [None]
  - MUSCLE SPASMS [None]
  - NIGHTMARE [None]
  - PERSONALITY DISORDER [None]
  - THINKING ABNORMAL [None]
  - UNRESPONSIVE TO VERBAL STIMULI [None]
